FAERS Safety Report 9485730 (Version 1)
Quarter: 2013Q3

REPORT INFORMATION
  Report Type: Spontaneous
  Country: US (occurrence: None)
  Receive Date: 20130821
  Receipt Date: 20130821
  Transmission Date: 20140515
  Serious: Yes (Other)
  Sender: FDA-Public Use
  Company Number: 1844411

PATIENT
  Sex: Male

DRUGS (1)
  1. FENTANYL CITRATE [Suspect]
     Indication: ENDOTRACHEAL INTUBATION
     Dosage: 1000 MCG/100ML, AT RATE OF 25 MCG/KG/HR
     Dates: start: 20130801, end: 20130801

REACTIONS (2)
  - Depressed level of consciousness [None]
  - Respiratory rate decreased [None]
